FAERS Safety Report 25733409 (Version 2)
Quarter: 2025Q3

REPORT INFORMATION
  Report Type: Report from Study
  Country: US (occurrence: US)
  Receive Date: 20250828
  Receipt Date: 20250905
  Transmission Date: 20251020
  Serious: Yes (Hospitalization)
  Sender: ABBVIE
  Company Number: US-ABBVIE-6418699

PATIENT
  Age: 77 Year
  Sex: Male

DRUGS (7)
  1. VYALEV [Suspect]
     Active Substance: FOSCARBIDOPA\FOSLEVODOPA
     Indication: Parkinson^s disease
     Route: 058
     Dates: start: 20250813, end: 20250815
  2. VYALEV [Suspect]
     Active Substance: FOSCARBIDOPA\FOSLEVODOPA
     Route: 058
  3. LEXAPRO [Concomitant]
     Active Substance: ESCITALOPRAM OXALATE
     Indication: Depression
  4. NUPLAZID [Concomitant]
     Active Substance: PIMAVANSERIN TARTRATE
     Indication: Parkinson^s disease
  5. GOCOVRI [Concomitant]
     Active Substance: AMANTADINE
     Indication: Parkinson^s disease
  6. FLUCLOXACILLIN [Concomitant]
     Active Substance: FLUCLOXACILLIN
     Indication: Urinary tract infection
  7. LEVOTHYROXINE [Concomitant]
     Active Substance: LEVOTHYROXINE
     Indication: Thyroid disorder

REACTIONS (7)
  - Hypertension [Recovered/Resolved]
  - Hypertension [Recovered/Resolved]
  - Dyskinesia [Recovered/Resolved]
  - Lethargy [Unknown]
  - Feeling abnormal [Recovered/Resolved]
  - Unresponsive to stimuli [Recovered/Resolved]
  - Klebsiella urinary tract infection [Recovered/Resolved]

NARRATIVE: CASE EVENT DATE: 20250801
